FAERS Safety Report 13396130 (Version 1)
Quarter: 2017Q2

REPORT INFORMATION
  Report Type: Spontaneous
  Country: US (occurrence: US)
  Receive Date: 20170403
  Receipt Date: 20170403
  Transmission Date: 20170830
  Serious: No
  Sender: FDA-Public Use
  Company Number: US-GLAXOSMITHKLINE-US2017045972

PATIENT
  Age: 76 Year
  Sex: Female

DRUGS (2)
  1. IMITREX [Suspect]
     Active Substance: SUMATRIPTAN SUCCINATE
     Indication: MIGRAINE
     Dosage: 100 MG, PRN
  2. SUMATRIPTAN SUCCINATE TABLET [Suspect]
     Active Substance: SUMATRIPTAN SUCCINATE
     Indication: MIGRAINE
     Dosage: 100 MG, PRN

REACTIONS (2)
  - Drug ineffective [Recovered/Resolved]
  - Drug dose omission [Recovered/Resolved]

NARRATIVE: CASE EVENT DATE: 201702
